FAERS Safety Report 9413044 (Version 1)
Quarter: 2013Q3

REPORT INFORMATION
  Report Type: Spontaneous
  Country: US (occurrence: None)
  Receive Date: 20130705
  Receipt Date: 20130705
  Transmission Date: 20140515
  Serious: Yes (Other)
  Sender: FDA-Public Use
  Company Number: 08-AUR-04831

PATIENT
  Age: 64 Year
  Sex: Female

DRUGS (1)
  1. METFORMIN [Suspect]

REACTIONS (3)
  - Dystonia [None]
  - Nuclear magnetic resonance imaging brain abnormal [None]
  - Dyskinesia [None]
